FAERS Safety Report 21089551 (Version 2)
Quarter: 2022Q3

REPORT INFORMATION
  Report Type: Spontaneous
  Country: US (occurrence: US)
  Receive Date: 20220715
  Receipt Date: 20220718
  Transmission Date: 20221027
  Serious: Yes (Other)
  Sender: FDA-Public Use
  Company Number: US-JNJFOC-20220719291

PATIENT

DRUGS (7)
  1. DIPHENHYDRAMINE HYDROCHLORIDE [Suspect]
     Active Substance: DIPHENHYDRAMINE HYDROCHLORIDE
     Indication: Product used for unknown indication
     Route: 065
  2. DOXYLAMINE [Suspect]
     Active Substance: DOXYLAMINE
     Indication: Product used for unknown indication
     Route: 065
  3. HYDROXYZINE [Suspect]
     Active Substance: HYDROXYZINE HYDROCHLORIDE
     Indication: Product used for unknown indication
     Route: 065
  4. BENZTROPINE [Suspect]
     Active Substance: BENZTROPINE
     Indication: Product used for unknown indication
     Route: 065
  5. DICYCLOMINE [Suspect]
     Active Substance: DICYCLOMINE HYDROCHLORIDE
     Indication: Product used for unknown indication
     Route: 065
  6. CHLORPHENIRAMINE MALEATE [Suspect]
     Active Substance: CHLORPHENIRAMINE MALEATE
     Indication: Product used for unknown indication
     Route: 065
  7. PROMETHAZINE [Suspect]
     Active Substance: PROMETHAZINE HYDROCHLORIDE
     Indication: Product used for unknown indication
     Route: 065

REACTIONS (4)
  - Acute kidney injury [Unknown]
  - Rhabdomyolysis [Unknown]
  - Toxicity to various agents [Unknown]
  - Transaminases increased [Unknown]
